FAERS Safety Report 5700695-6 (Version None)
Quarter: 2008Q2

REPORT INFORMATION
  Report Type: 
  Country: None (occurrence: None)
  Receive Date: 20080410
  Receipt Date: 20080303
  Transmission Date: 20081010
  Serious: No
  Sender: FDA-Public Use
  Company Number: A0692273A

PATIENT
  Age: 83 Year
  Sex: Female

DRUGS (5)
  1. TYKERB [Suspect]
     Indication: BREAST CANCER
     Dosage: 250MG PER DAY
     Route: 048
     Dates: start: 20071008, end: 20080303
  2. XELODA [Concomitant]
  3. DIOVAN [Concomitant]
  4. PINDOLOL [Concomitant]
  5. FOSAMAX [Concomitant]

REACTIONS (13)
  - DECREASED APPETITE [None]
  - DEPRESSION [None]
  - ERYTHEMA [None]
  - FATIGUE [None]
  - FEELING COLD [None]
  - HYPERAESTHESIA [None]
  - INSOMNIA [None]
  - JOINT SWELLING [None]
  - OEDEMA PERIPHERAL [None]
  - ONYCHOCLASIS [None]
  - PRURITUS [None]
  - RASH GENERALISED [None]
  - SKIN TIGHTNESS [None]
